FAERS Safety Report 5546376-3 (Version None)
Quarter: 2007Q4

REPORT INFORMATION
  Report Type: 
  Country: None (occurrence: None)
  Receive Date: 20071211
  Receipt Date: 20071207
  Transmission Date: 20080405
  Serious: Yes (Death, Hospitalization)
  Sender: FDA-Public Use
  Company Number: US-BRISTOL-MYERS SQUIBB COMPANY-14007785

PATIENT
  Age: 69 Year
  Sex: Female
  Weight: 96 kg

DRUGS (1)
  1. SPRYCEL [Suspect]
     Indication: ADENOCARCINOMA PANCREAS
     Route: 048
     Dates: start: 20071017, end: 20071105

REACTIONS (5)
  - INFECTION [None]
  - MALIGNANT NEOPLASM PROGRESSION [None]
  - MYOCARDIAL INFARCTION [None]
  - THROMBOSIS [None]
  - TROPONIN T INCREASED [None]
